FAERS Safety Report 15357232 (Version 3)
Quarter: 2019Q1

REPORT INFORMATION
  Report Type: Report from Study
  Country: JP (occurrence: JP)
  Receive Date: 20180906
  Receipt Date: 20190123
  Transmission Date: 20190417
  Serious: Yes (Other)
  Sender: FDA-Public Use
  Company Number: PHJP2018JP015898

PATIENT
  Age: 57 Year
  Sex: Male
  Weight: 78 kg

DRUGS (12)
  1. ILARIS [Suspect]
     Active Substance: CANAKINUMAB
     Dosage: 150 MG, UNK
     Route: 058
     Dates: start: 20180608
  2. ILARIS [Suspect]
     Active Substance: CANAKINUMAB
     Dosage: 150 MG, UNK
     Route: 058
     Dates: start: 20180803
  3. CANDESARTAN TABLET [Suspect]
     Active Substance: CANDESARTAN
     Indication: HYPERTENSION
     Dosage: 4 MG, UNK
     Route: 048
  4. TELMISARTAN. [Concomitant]
     Active Substance: TELMISARTAN
     Indication: HYPERTENSION
     Dosage: UNK
     Route: 048
  5. MOHRUS [Concomitant]
     Active Substance: KETOPROFEN
     Indication: PRODUCT USED FOR UNKNOWN INDICATION
     Dosage: UNK
     Route: 062
  6. ILARIS [Suspect]
     Active Substance: CANAKINUMAB
     Indication: FAMILIAL MEDITERRANEAN FEVER
     Dosage: 150 MG, UNK
     Route: 058
     Dates: start: 20180316
  7. ILARIS [Suspect]
     Active Substance: CANAKINUMAB
     Dosage: 150 MG, UNK
     Route: 058
     Dates: start: 20180413
  8. ILARIS [Suspect]
     Active Substance: CANAKINUMAB
     Dosage: 150 MG, UNK
     Route: 058
     Dates: start: 20180706
  9. ILARIS [Suspect]
     Active Substance: CANAKINUMAB
     Dosage: 150 MG, UNK
     Route: 058
     Dates: start: 20180511
  10. UNISIA [Concomitant]
     Active Substance: AMLODIPINE BESYLATE\CANDESARTAN CILEXETIL
     Indication: HYPERTENSION
     Dosage: UNK
     Route: 048
  11. CELECOX [Concomitant]
     Active Substance: CELECOXIB
     Indication: PRODUCT USED FOR UNKNOWN INDICATION
     Dosage: UNK
     Route: 048
  12. ILARIS [Suspect]
     Active Substance: CANAKINUMAB
     Dosage: 150 MG, UNK
     Route: 058
     Dates: start: 20180831, end: 20180831

REACTIONS (10)
  - Bursitis [Recovering/Resolving]
  - Haemosiderosis [Recovering/Resolving]
  - Feeling abnormal [Unknown]
  - Blood creatinine increased [Recovering/Resolving]
  - Arthralgia [Unknown]
  - Bursal fluid accumulation [Recovering/Resolving]
  - Meniscus injury [Unknown]
  - Induration [Unknown]
  - Joint swelling [Unknown]
  - Osteoarthritis [Recovering/Resolving]

NARRATIVE: CASE EVENT DATE: 20180606
